FAERS Safety Report 4705200-9 (Version None)
Quarter: 2005Q2

REPORT INFORMATION
  Report Type: 
  Country: None (occurrence: None)
  Receive Date: 20050628
  Receipt Date: 20050614
  Transmission Date: 20051028
  Serious: Yes (Hospitalization)
  Sender: FDA-Public Use
  Company Number: 11599

PATIENT
  Age: 69 Year
  Sex: Female

DRUGS (5)
  1. METHOTREXATE [Suspect]
     Indication: RHEUMATOID ARTHRITIS
     Dosage: 15 MG WEEKLY, PO
     Route: 048
     Dates: start: 20030101
  2. FOLIC ACID [Concomitant]
  3. PREDNISOLONE [Concomitant]
  4. RABEPRAZOLE SODIUM [Concomitant]
  5. FERROUS SULFATE TAB [Concomitant]

REACTIONS (1)
  - CLOSTRIDIUM COLITIS [None]
